FAERS Safety Report 17196320 (Version 9)
Quarter: 2024Q4

REPORT INFORMATION
  Report Type: Spontaneous
  Country: DE (occurrence: DE)
  Receive Date: 20191224
  Receipt Date: 20241209
  Transmission Date: 20250114
  Serious: Yes (Death, Life-Threatening, Hospitalization, Other)
  Sender: BRISTOL-MYERS SQUIBB COMPANY
  Company Number: DE-BRISTOL-MYERS SQUIBB COMPANY-BMS-2019-121939

PATIENT
  Sex: Female
  Weight: 52 kg

DRUGS (39)
  1. ELIQUIS [Suspect]
     Active Substance: APIXABAN
     Indication: Systemic lupus erythematosus
     Dosage: 2.5 MILLIGRAM
  2. BENLYSTA [Suspect]
     Active Substance: BELIMUMAB
     Indication: Systemic lupus erythematosus
     Dosage: 200 MILLIGRAM/KILOGRAM, QWK
     Route: 058
     Dates: start: 201708, end: 201904
  3. BENLYSTA [Suspect]
     Active Substance: BELIMUMAB
     Indication: White blood cell count decreased
     Dosage: 10 MILLIGRAM/KILOGRAM, QWK
     Route: 058
     Dates: start: 201711, end: 201812
  4. BENLYSTA [Suspect]
     Active Substance: BELIMUMAB
     Dosage: 200 MILLIGRAM/KILOGRAM, QWK
     Route: 058
     Dates: start: 201806, end: 201807
  5. AZATHIOPRINE [Suspect]
     Active Substance: AZATHIOPRINE
     Indication: Systemic lupus erythematosus
     Dosage: UNK
     Dates: start: 1997, end: 2008
  6. AZATHIOPRINE [Suspect]
     Active Substance: AZATHIOPRINE
     Indication: White blood cell count decreased
     Dosage: 50 MILLIGRAM
     Dates: start: 20100419, end: 201904
  7. AZATHIOPRINE [Suspect]
     Active Substance: AZATHIOPRINE
     Indication: Lymphopenia
     Dosage: 50 MILLIGRAM
     Dates: start: 201906, end: 201907
  8. PREDNISOLONE [Suspect]
     Active Substance: PREDNISOLONE
     Indication: Systemic lupus erythematosus
     Dosage: 5 MILLIGRAM, QD
     Dates: start: 1988
  9. LEVOTHYROXINE SODIUM [Suspect]
     Active Substance: LEVOTHYROXINE SODIUM
     Indication: Systemic lupus erythematosus
     Dosage: UNK
  10. FLUVASTATIN [Suspect]
     Active Substance: FLUVASTATIN SODIUM
     Indication: Systemic lupus erythematosus
     Dosage: 1 DF, QD (20)
  11. FLUVASTATIN [Suspect]
     Active Substance: FLUVASTATIN SODIUM
     Dosage: UNK, QD (1X/DAY)
  12. VALSARTAN [Suspect]
     Active Substance: VALSARTAN
     Indication: Systemic lupus erythematosus
     Dosage: UNK, 2X/DAY
  13. VALSARTAN [Suspect]
     Active Substance: VALSARTAN
     Dosage: UNK, QD
  14. ACYCLOVIR [Suspect]
     Active Substance: ACYCLOVIR
     Indication: Systemic lupus erythematosus
     Dosage: 400 MILLIGRAM, TID
  15. ACYCLOVIR [Suspect]
     Active Substance: ACYCLOVIR
     Dosage: 400 MILLIGRAM, QD
  16. ACYCLOVIR [Suspect]
     Active Substance: ACYCLOVIR
     Dosage: 1200 MILLIGRAM, QD
  17. PENTACARINAT [Suspect]
     Active Substance: PENTAMIDINE ISETHIONATE
     Indication: Systemic lupus erythematosus
     Dosage: UNK
     Route: 055
     Dates: start: 201904
  18. MOLSIDOMINE [Suspect]
     Active Substance: MOLSIDOMINE
     Indication: Systemic lupus erythematosus
     Dosage: 1 DF, QD (8 RET)
  19. MOLSIDOMINE [Suspect]
     Active Substance: MOLSIDOMINE
     Dosage: UNK UNK, QD 8 RET (0-0-1)
  20. DETRUSITOL [Suspect]
     Active Substance: TOLTERODINE TARTRATE
     Indication: Systemic lupus erythematosus
     Dosage: UNK
  21. MORPHINE [Suspect]
     Active Substance: MORPHINE
     Indication: Systemic lupus erythematosus
     Dosage: 20 TO 55XDAILY
  22. MCP [Concomitant]
     Active Substance: METOCLOPRAMIDE HYDROCHLORIDE
     Indication: Product used for unknown indication
     Dosage: 3 DF, QD ( TID 10)
  23. NITRENDIPINE [Concomitant]
     Active Substance: NITRENDIPINE
     Indication: Product used for unknown indication
     Dosage: UNK
  24. EZETIMIBE [Concomitant]
     Active Substance: EZETIMIBE
     Indication: Product used for unknown indication
  25. EZETIMIBE [Concomitant]
     Active Substance: EZETIMIBE
     Dosage: UNK, 1X/DAY
  26. ISDN [Concomitant]
     Indication: Product used for unknown indication
     Dosage: 2 DF, QD (BID20 RET)
  27. SAB SIMPLEX [DIMETICONE] [Concomitant]
     Indication: Product used for unknown indication
     Dosage: 30 GTT, TID
  28. CHOLECALCIFEROL [Concomitant]
     Active Substance: CHOLECALCIFEROL
     Indication: Product used for unknown indication
     Dosage: 1 DF, QW ( WE, 20000)
  29. UMECLIDINIUM BROMIDE\VILANTEROL TRIFENATATE [Concomitant]
     Active Substance: UMECLIDINIUM BROMIDE\VILANTEROL TRIFENATATE
     Indication: Product used for unknown indication
     Dosage: UNK, 55/221 PUSH
     Route: 055
  30. UMECLIDINIUM BROMIDE\VILANTEROL TRIFENATATE [Concomitant]
     Active Substance: UMECLIDINIUM BROMIDE\VILANTEROL TRIFENATATE
     Route: 055
  31. LEVOTHYROXINE SODIUM [Concomitant]
     Active Substance: LEVOTHYROXINE SODIUM
     Indication: Product used for unknown indication
     Dosage: 1 DF, QD (50)
  32. LEVOTHYROXINE SODIUM [Concomitant]
     Active Substance: LEVOTHYROXINE SODIUM
     Dosage: UNK, QD (1X/DAY)
  33. MORPHINE [Concomitant]
     Active Substance: MORPHINE
     Indication: Product used for unknown indication
     Dosage: 2 DF, QD (BID 30 RET)
  34. MORPHINE [Concomitant]
     Active Substance: MORPHINE
     Dosage: UNK (30 2X/DAY)
  35. DULOXETINE [Concomitant]
     Active Substance: DULOXETINE
     Indication: Product used for unknown indication
     Dosage: 1 DF, QD (30 (1-0-0), UNK (30, 1X/DAY)
  36. LAXATAN M [Concomitant]
     Indication: Product used for unknown indication
     Dosage: UNK
  37. HYDROXYCHLOROQUINE [Concomitant]
     Active Substance: HYDROXYCHLOROQUINE
     Indication: Product used for unknown indication
     Dosage: 200 MILLIGRAM, QD
     Dates: start: 1994, end: 1997
  38. HYDROXYCHLOROQUINE [Concomitant]
     Active Substance: HYDROXYCHLOROQUINE
     Dosage: 200 MG, QD
  39. HYDROXYCHLOROQUINE [Concomitant]
     Active Substance: HYDROXYCHLOROQUINE
     Dosage: 200 MG, QD
     Dates: start: 2008

REACTIONS (29)
  - Peritonitis [Fatal]
  - Lymphopenia [Fatal]
  - Sepsis [Fatal]
  - Pneumocystis jirovecii pneumonia [Fatal]
  - Hypothyroidism [Unknown]
  - Leukopenia [Unknown]
  - Osteonecrosis [Unknown]
  - Gastritis haemorrhagic [Unknown]
  - Antiphospholipid syndrome [Unknown]
  - Thrombocytopenia [Unknown]
  - Colitis ulcerative [Unknown]
  - Skin disorder [Unknown]
  - Herpes simplex reactivation [Unknown]
  - Pleuritic pain [Unknown]
  - Fall [Unknown]
  - Urinary tract infection [Unknown]
  - Hypertension [Unknown]
  - Antinuclear antibody negative [Unknown]
  - Gastrooesophageal reflux disease [Unknown]
  - Coombs positive haemolytic anaemia [Unknown]
  - Complex regional pain syndrome [Unknown]
  - Hyperlipidaemia [Unknown]
  - Depression [Unknown]
  - Erysipelas [Unknown]
  - Pancreatitis acute [Unknown]
  - Anxiety disorder [Unknown]
  - Systemic lupus erythematosus [Unknown]
  - Drug hypersensitivity [Unknown]
  - Off label use [Unknown]

NARRATIVE: CASE EVENT DATE: 19900101
